FAERS Safety Report 10355372 (Version 1)
Quarter: 2014Q3

REPORT INFORMATION
  Report Type: Spontaneous
  Country: BR (occurrence: BR)
  Receive Date: 20140731
  Receipt Date: 20140731
  Transmission Date: 20150326
  Serious: Yes (Hospitalization)
  Sender: FDA-Public Use
  Company Number: BR-PFIZER INC-2014211104

PATIENT
  Age: 70 Year
  Sex: Male
  Weight: 73.8 kg

DRUGS (6)
  1. AVODART [Concomitant]
     Active Substance: DUTASTERIDE
     Indication: PROSTATIC DISORDER
     Dosage: 1 TABLET IN THE MORNING
     Dates: start: 1995
  2. CITALOR [Suspect]
     Active Substance: ATORVASTATIN
     Dosage: 10 MG, DAILY
     Dates: start: 20131018
  3. CARDIZEM [Concomitant]
     Active Substance: DILTIAZEM HYDROCHLORIDE
     Indication: CARDIAC DISORDER
     Dosage: 1 TABLET IN THE MORNING AND 1 AT NIGHT
  4. SECOTEX [Concomitant]
     Active Substance: TAMSULOSIN
     Indication: PROSTATIC DISORDER
     Dosage: 4 MG, DAILY (AT BEDTIME)
     Dates: start: 1995
  5. PANTOPRAZOLE [Concomitant]
     Active Substance: PANTOPRAZOLE SODIUM
     Indication: ABDOMINAL DISCOMFORT
     Dosage: 1 TABLET IN THE MORNING (FASTING) AND ONE IN THE AFTERNOON
     Dates: start: 1995
  6. LANTUS [Concomitant]
     Active Substance: INSULIN GLARGINE
     Indication: DIABETES MELLITUS MANAGEMENT
     Dosage: 14 IU, UNK

REACTIONS (2)
  - Cardiac disorder [Unknown]
  - Dyspnoea [Unknown]

NARRATIVE: CASE EVENT DATE: 2014
